FAERS Safety Report 21192715 (Version 1)
Quarter: 2022Q3

REPORT INFORMATION
  Report Type: Spontaneous
  Country: FI (occurrence: FI)
  Receive Date: 20220810
  Receipt Date: 20220810
  Transmission Date: 20221027
  Serious: Yes (Hospitalization, Other)
  Sender: FDA-Public Use
  Company Number: FI-BRISTOL-MYERS SQUIBB COMPANY-2022-085249

PATIENT
  Age: 76 Year
  Sex: Male

DRUGS (3)
  1. ELIQUIS [Suspect]
     Active Substance: APIXABAN
     Indication: Cerebrovascular accident prophylaxis
     Dosage: DOSE : 5 MG REDUCED TO 2,5 MG;     FREQ : TWICE DAILY
     Route: 065
     Dates: start: 2022, end: 2022
  2. ELIQUIS [Suspect]
     Active Substance: APIXABAN
     Route: 065
     Dates: start: 2022
  3. LUVOX [Concomitant]
     Active Substance: FLUVOXAMINE MALEATE
     Indication: Product used for unknown indication
     Route: 065

REACTIONS (4)
  - Haematuria [Unknown]
  - Urinary retention [Unknown]
  - Thrombosis [Unknown]
  - Intentional product use issue [Unknown]
